FAERS Safety Report 4398369-X (Version None)
Quarter: 2004Q2

REPORT INFORMATION
  Report Type: 
  Country: None (occurrence: None)
  Receive Date: 20040621
  Receipt Date: 20040127
  Transmission Date: 20050107
  Serious: Yes (Other)
  Sender: FDA-Public Use
  Company Number: USA-2004-0012645

PATIENT
  Age: 51 Year
  Sex: Female

DRUGS (3)
  1. OXYCONTIN [Suspect]
  2. PERCOCET [Suspect]
  3. TYLOX (PARACETAMOL, OXYCODONE HYDROCHLORIDE, OX) [Suspect]

REACTIONS (1)
  - DRUG DEPENDENCE [None]
